FAERS Safety Report 9788507 (Version 5)
Quarter: 2014Q1

REPORT INFORMATION
  Report Type: Spontaneous
  Country: US (occurrence: None)
  Receive Date: 20131227
  Receipt Date: 20140210
  Transmission Date: 20141002
  Serious: Yes (Death, Life-Threatening)
  Sender: FDA-Public Use
  Company Number: FK201305536

PATIENT
  Age: 58 Year
  Sex: Male

DRUGS (1)
  1. PROPOFOL [Suspect]
     Indication: SEDATIVE THERAPY
     Dosage: 50 MG, ONE TIME, INTRAVENOUS PUSH IVP
     Dates: start: 20131219, end: 20131219

REACTIONS (9)
  - Bradycardia [None]
  - Cardiac arrest [None]
  - Brain injury [None]
  - Haemodynamic instability [None]
  - Cardio-respiratory arrest [None]
  - Sinus tachycardia [None]
  - Skin disorder [None]
  - Mitral valve incompetence [None]
  - Tricuspid valve incompetence [None]
